FAERS Safety Report 9110483 (Version 1)
Quarter: 2013Q1

REPORT INFORMATION
  Report Type: Spontaneous
  Country: US (occurrence: US)
  Receive Date: 20130219
  Receipt Date: 20130219
  Transmission Date: 20140127
  Serious: No
  Sender: FDA-Public Use
  Company Number: US-BRACCO-007689

PATIENT
  Sex: 0

DRUGS (2)
  1. ISOVUE 370 [Suspect]
     Indication: DIAGNOSTIC PROCEDURE
     Route: 042
     Dates: start: 201202, end: 201202
  2. ISOVUE 370 [Suspect]
     Indication: PRODUCT USED FOR UNKNOWN INDICATION
     Route: 042
     Dates: start: 201202, end: 201202

REACTIONS (1)
  - Extravasation [Recovered/Resolved]
